FAERS Safety Report 12622526 (Version 1)
Quarter: 2016Q3

REPORT INFORMATION
  Report Type: Spontaneous
  Country: US (occurrence: US)
  Receive Date: 20160804
  Receipt Date: 20160804
  Transmission Date: 20161109
  Serious: No
  Sender: FDA-Public Use
  Company Number: US-BIOMARINAP-US-2016-110648

PATIENT
  Age: 28 Year
  Sex: Female
  Weight: 50 kg

DRUGS (1)
  1. NAGLAZYME [Suspect]
     Active Substance: GALSULFASE
     Indication: MUCOPOLYSACCHARIDOSIS VI
     Dosage: 40 MG, QW
     Route: 042
     Dates: start: 20160701

REACTIONS (1)
  - Back pain [Unknown]

NARRATIVE: CASE EVENT DATE: 20160801
